FAERS Safety Report 9981565 (Version 2)
Quarter: 2015Q1

REPORT INFORMATION
  Report Type: Report from Study
  Country: US (occurrence: US)
  Receive Date: 20140307
  Receipt Date: 20150216
  Transmission Date: 20150721
  Serious: No
  Sender: FDA-Public Use
  Company Number: US-ABBVIE-13P-163-1178367-00

PATIENT
  Age: 40 Year
  Sex: Male
  Weight: 81.72 kg

DRUGS (8)
  1. HUMIRA [Suspect]
     Active Substance: ADALIMUMAB
     Indication: NAIL PSORIASIS
     Dosage: PATIENT WAS STARTED WITH LOADING DOSE
     Route: 058
     Dates: start: 20131005, end: 20131005
  2. VITAMIN D [Concomitant]
     Active Substance: CHOLECALCIFEROL
     Indication: PRODUCT USED FOR UNKNOWN INDICATION
  3. HUMIRA [Suspect]
     Active Substance: ADALIMUMAB
     Route: 058
     Dates: start: 20131012, end: 20131123
  4. ZINC [Concomitant]
     Active Substance: ZINC\ZINC CHLORIDE
     Indication: PRODUCT USED FOR UNKNOWN INDICATION
  5. BIOTIN [Concomitant]
     Active Substance: BIOTIN
     Indication: PRODUCT USED FOR UNKNOWN INDICATION
  6. HAIR SKIN AND NAIL VITAMIN [Concomitant]
     Indication: PRODUCT USED FOR UNKNOWN INDICATION
  7. SULFASALAZINE. [Suspect]
     Active Substance: SULFASALAZINE
     Indication: RASH PUSTULAR
  8. SULFASALAZINE. [Suspect]
     Active Substance: SULFASALAZINE
     Indication: RASH
     Route: 065
     Dates: start: 201312, end: 201312

REACTIONS (22)
  - Skin exfoliation [Recovered/Resolved]
  - Rash erythematous [Recovered/Resolved]
  - Rash [Recovered/Resolved]
  - Oedema [Recovered/Resolved]
  - Skin warm [Recovered/Resolved]
  - Adverse drug reaction [Recovered/Resolved]
  - Rash pruritic [Recovered/Resolved]
  - Skin discolouration [Recovered/Resolved]
  - Weight decreased [Recovered/Resolved]
  - Rash generalised [Recovered/Resolved]
  - Depression [Recovered/Resolved]
  - Rash [Not Recovered/Not Resolved]
  - Pustular psoriasis [Unknown]
  - Arthralgia [Recovered/Resolved]
  - Rash [Recovered/Resolved]
  - Pain [Recovered/Resolved]
  - Rash papular [Recovered/Resolved]
  - Skin lesion [Recovered/Resolved]
  - Oedema peripheral [Recovered/Resolved]
  - Rash pustular [Recovered/Resolved]
  - Erythema [Recovered/Resolved]
  - Rash vesicular [Recovered/Resolved]

NARRATIVE: CASE EVENT DATE: 201311
